FAERS Safety Report 4279071-1 (Version None)
Quarter: 2004Q1

REPORT INFORMATION
  Report Type: 
  Country: None (occurrence: None)
  Receive Date: 20040126
  Receipt Date: 20031017
  Transmission Date: 20041129
  Serious: Yes (Other)
  Sender: FDA-Public Use
  Company Number: PHBS2003JP11643

PATIENT

DRUGS (1)
  1. ZADITEN [Suspect]
     Route: 048

REACTIONS (1)
  - RHABDOMYOLYSIS [None]
